FAERS Safety Report 21996475 (Version 1)
Quarter: 2023Q1

REPORT INFORMATION
  Report Type: Other
  Country: GB (occurrence: None)
  Receive Date: 20230215
  Receipt Date: 20230215
  Transmission Date: 20230417
  Serious: Yes (Other)
  Sender: FDA-Public Use
  Company Number: GB-ROCHE-3175659

PATIENT
  Sex: Female

DRUGS (3)
  1. TOCILIZUMAB [Suspect]
     Active Substance: TOCILIZUMAB
     Indication: Rheumatoid arthritis
     Route: 058
     Dates: start: 20220602
  2. METHOTREXATE [Concomitant]
     Active Substance: METHOTREXATE
  3. OMEPRAZOLE [Concomitant]
     Active Substance: OMEPRAZOLE

REACTIONS (7)
  - Haematemesis [Unknown]
  - Illness [Unknown]
  - Back pain [Unknown]
  - Feeding disorder [Unknown]
  - Condition aggravated [Unknown]
  - Liver disorder [Unknown]
  - Device difficult to use [Unknown]
